FAERS Safety Report 13577817 (Version 18)
Quarter: 2018Q2

REPORT INFORMATION
  Report Type: Report from Study
  Country: CA (occurrence: CA)
  Receive Date: 20170524
  Receipt Date: 20180419
  Transmission Date: 20180711
  Serious: Yes (Disabling, Other)
  Sender: FDA-Public Use
  Company Number: CA-SA-2017SA067125

PATIENT
  Age: 29 Year
  Sex: Female

DRUGS (9)
  1. LEMTRADA [Suspect]
     Active Substance: ALEMTUZUMAB
     Indication: RELAPSING-REMITTING MULTIPLE SCLEROSIS
     Route: 041
     Dates: start: 20170410, end: 20170412
  2. GRAVOL [Concomitant]
     Active Substance: DIMENHYDRINATE
     Indication: PREMEDICATION
     Route: 048
     Dates: start: 20170410, end: 20170412
  3. RANITIDINE. [Concomitant]
     Active Substance: RANITIDINE
     Indication: PREMEDICATION
     Route: 048
     Dates: start: 20170410, end: 20170412
  4. ACYCLOVIR. [Concomitant]
     Active Substance: ACYCLOVIR
     Indication: PREMEDICATION
     Route: 048
     Dates: start: 20170410
  5. VITAMIN D [Concomitant]
     Active Substance: CHOLECALCIFEROL
     Indication: RELAPSING-REMITTING MULTIPLE SCLEROSIS
     Route: 048
  6. BENADRYL [Concomitant]
     Active Substance: DIPHENHYDRAMINE HYDROCHLORIDE
     Indication: PREMEDICATION
     Dosage: DOSE: 25-50MG?ROUTE OF ADMINISTRATION: PO/IV
     Dates: start: 20170410
  7. METHYLPREDNISOLONE. [Concomitant]
     Active Substance: METHYLPREDNISOLONE
     Indication: PREMEDICATION
     Route: 042
     Dates: start: 20170410, end: 20170412
  8. TYLENOL [Concomitant]
     Active Substance: ACETAMINOPHEN
     Indication: PREMEDICATION
     Route: 048
     Dates: start: 20170410
  9. DEPO-PROVERA [Concomitant]
     Active Substance: MEDROXYPROGESTERONE ACETATE
     Indication: CONTRACEPTION
     Route: 065

REACTIONS (44)
  - Blood thyroid stimulating hormone decreased [Recovered/Resolved]
  - Urine abnormality [Not Recovered/Not Resolved]
  - Tremor [Recovered/Resolved]
  - Crystal urine present [Unknown]
  - Mean cell haemoglobin decreased [Not Recovered/Not Resolved]
  - Erythema [Recovered/Resolved]
  - Rash generalised [Recovered/Resolved]
  - Thyroxine free increased [Recovered/Resolved]
  - Fatigue [Unknown]
  - Muscular weakness [Unknown]
  - Bacterial test positive [Not Recovered/Not Resolved]
  - Balance disorder [Recovered/Resolved]
  - Temperature intolerance [Unknown]
  - Pollakiuria [Recovered/Resolved]
  - Decreased appetite [Not Recovered/Not Resolved]
  - Tachycardia [Recovered/Resolved]
  - Urticaria [Recovered/Resolved]
  - Rash erythematous [Recovering/Resolving]
  - Leukopenia [Recovered/Resolved]
  - Blood urine present [Recovered/Resolved]
  - Thyroxine free decreased [Unknown]
  - Neutropenia [Not Recovered/Not Resolved]
  - Basedow^s disease [Recovered/Resolved]
  - Dysuria [Recovering/Resolving]
  - Mean cell volume decreased [Not Recovered/Not Resolved]
  - Lymphocyte count decreased [Recovered/Resolved]
  - Red blood cells urine positive [Recovered/Resolved]
  - Blood thyroid stimulating hormone increased [Unknown]
  - White blood cells urine positive [Not Recovered/Not Resolved]
  - Urinary tract infection [Not Recovered/Not Resolved]
  - Rash pruritic [Recovered/Resolved]
  - Fatigue [Not Recovered/Not Resolved]
  - Tremor [Unknown]
  - Hyperhidrosis [Unknown]
  - Red cell distribution width increased [Not Recovered/Not Resolved]
  - Fatigue [Recovered/Resolved]
  - Autoimmune thyroiditis [Unknown]
  - Wheelchair user [Recovered/Resolved]
  - Urine analysis abnormal [Unknown]
  - Urinary sediment present [Recovered/Resolved]
  - Urine leukocyte esterase positive [Not Recovered/Not Resolved]
  - Feeling hot [Recovered/Resolved]
  - Body temperature increased [Recovered/Resolved]
  - Pruritus [Recovered/Resolved]

NARRATIVE: CASE EVENT DATE: 20170410
